FAERS Safety Report 14659554 (Version 5)
Quarter: 2018Q4

REPORT INFORMATION
  Report Type: Spontaneous
  Country: US (occurrence: US)
  Receive Date: 20180320
  Receipt Date: 20181212
  Transmission Date: 20190204
  Serious: Yes (Hospitalization, Other)
  Sender: FDA-Public Use
  Company Number: US-BAYER-2018-048245

PATIENT
  Age: 16 Year
  Sex: Female
  Weight: 49.89 kg

DRUGS (2)
  1. YAZ [Suspect]
     Active Substance: DROSPIRENONE\ETHINYL ESTRADIOL
     Indication: MENSTRUATION IRREGULAR
     Dosage: UNK
     Route: 048
     Dates: start: 201407, end: 20150701
  2. YAZ [Suspect]
     Active Substance: DROSPIRENONE\ETHINYL ESTRADIOL
     Indication: PREMENSTRUAL SYNDROME

REACTIONS (8)
  - Brain injury [None]
  - Hemiplegia [None]
  - Cerebral artery occlusion [None]
  - Cerebral infarction [None]
  - Embolic stroke [Recovering/Resolving]
  - Cerebrovascular accident [None]
  - Seizure [None]
  - Loss of personal independence in daily activities [None]

NARRATIVE: CASE EVENT DATE: 20150701
